FAERS Safety Report 17929790 (Version 5)
Quarter: 2021Q2

REPORT INFORMATION
  Report Type: Spontaneous
  Country: US (occurrence: US)
  Receive Date: 20200623
  Receipt Date: 20210622
  Transmission Date: 20210717
  Serious: No
  Sender: FDA-Public Use
  Company Number: US-PFIZER INC-2020237127

PATIENT
  Age: 65 Year
  Sex: Female

DRUGS (1)
  1. LYRICA [Suspect]
     Active Substance: PREGABALIN
     Dosage: 100 MG, 3X/DAY (100 MG 3 TIMES A DAY)

REACTIONS (4)
  - Neuralgia [Unknown]
  - Arthritis [Unknown]
  - Pain [Unknown]
  - Panic reaction [Unknown]
